FAERS Safety Report 21845387 (Version 1)
Quarter: 2023Q1

REPORT INFORMATION
  Report Type: Spontaneous
  Country: US (occurrence: None)
  Receive Date: 20230111
  Receipt Date: 20230111
  Transmission Date: 20230417
  Serious: No
  Sender: FDA-Public Use
  Company Number: 2022A412657

PATIENT
  Age: 57 Year
  Sex: Male
  Weight: 150.1 kg

DRUGS (1)
  1. PULMICORT FLEXHALER [Suspect]
     Active Substance: BUDESONIDE
     Indication: Wheezing
     Route: 055
     Dates: start: 202211

REACTIONS (3)
  - Wheezing [Not Recovered/Not Resolved]
  - Product storage error [Unknown]
  - Product dose omission issue [Not Recovered/Not Resolved]

NARRATIVE: CASE EVENT DATE: 20220101
